FAERS Safety Report 7970725 (Version 2)
Quarter: 2014Q1

REPORT INFORMATION
  Report Type: Spontaneous
  Country: US (occurrence: US)
  Receive Date: 20110602
  Receipt Date: 20140123
  Transmission Date: 20141002
  Serious: Yes (Life-Threatening, Hospitalization, Other)
  Sender: FDA-Public Use
  Company Number: US-BAYER-2011-047112

PATIENT
  Age: 26 Year
  Sex: Female
  Weight: 62.6 kg

DRUGS (9)
  1. YAZ [Suspect]
     Indication: PRODUCT USED FOR UNKNOWN INDICATION
  2. YASMIN [Suspect]
     Indication: PRODUCT USED FOR UNKNOWN INDICATION
  3. OCELLA [Suspect]
     Indication: PRODUCT USED FOR UNKNOWN INDICATION
  4. ALPRAZOLAM [Concomitant]
     Dosage: 2 MG, UNK
     Dates: start: 20070717, end: 20091129
  5. ZOFRAN [Concomitant]
  6. PREVACID [Concomitant]
  7. BENTYL [Concomitant]
  8. DARVOCET-N [Concomitant]
  9. FLEXERIL [Concomitant]

REACTIONS (9)
  - Gallbladder non-functioning [None]
  - Cholecystitis chronic [None]
  - Internal injury [None]
  - Organ failure [None]
  - Injury [None]
  - Pain [None]
  - General physical health deterioration [None]
  - Anxiety [None]
  - Anhedonia [None]
